FAERS Safety Report 4749064-6 (Version None)
Quarter: 2005Q3

REPORT INFORMATION
  Report Type: 
  Country: None (occurrence: None)
  Receive Date: 20050817
  Receipt Date: 20050804
  Transmission Date: 20060218
  Serious: Yes (Hospitalization)
  Sender: FDA-Public Use
  Company Number: 2005067935

PATIENT
  Age: 73 Year
  Sex: Female
  Weight: 100 kg

DRUGS (5)
  1. CELEBREX [Suspect]
     Indication: OSTEOARTHRITIS
     Dosage: 200 MG (1 IN 1 D), ORAL
     Route: 048
     Dates: start: 20040420, end: 20050407
  2. OLMETEC (OLMESARTAN) [Suspect]
     Indication: HYPERTENSION
     Dosage: 20 MG (1 IN 1 D), ORAL
     Route: 048
     Dates: start: 20050310, end: 20050101
  3. VOLTAREN [Suspect]
     Indication: OSTEOARTHRITIS
     Dosage: 75 MG (2 IN 1 D), ORAL
     Route: 048
     Dates: start: 20050407, end: 20050101
  4. LERCANIDIPINE [Concomitant]
  5. PRAVASTATIN [Concomitant]

REACTIONS (7)
  - BLOOD BICARBONATE DECREASED [None]
  - BLOOD CREATININE INCREASED [None]
  - BLOOD POTASSIUM INCREASED [None]
  - CREATININE RENAL CLEARANCE DECREASED [None]
  - DRUG INTERACTION [None]
  - RENAL CYST [None]
  - RENAL FAILURE ACUTE [None]
